FAERS Safety Report 13988992 (Version 3)
Quarter: 2017Q4

REPORT INFORMATION
  Report Type: Spontaneous
  Country: ZA (occurrence: ZA)
  Receive Date: 20170919
  Receipt Date: 20171114
  Transmission Date: 20180321
  Serious: Yes (Hospitalization, Other)
  Sender: FDA-Public Use
  Company Number: ZA-AMGEN-ZAFSP2017128041

PATIENT
  Age: 42 Year
  Sex: Male

DRUGS (6)
  1. ENBREL [Suspect]
     Active Substance: ETANERCEPT
     Indication: ANKYLOSING SPONDYLITIS
     Dosage: 50 MG, WEEKLY
     Route: 058
     Dates: start: 20160818, end: 20170817
  2. METHOTREXATE. [Concomitant]
     Active Substance: METHOTREXATE
     Dosage: UNK
  3. TREPILINE [Concomitant]
     Active Substance: AMITRIPTYLINE
     Dosage: UNK UNK, 1X/DAY
  4. ACLASTA [Concomitant]
     Active Substance: ZOLEDRONIC ACID
     Indication: OSTEOPOROSIS
     Dosage: ONCE A YEAR
     Route: 065
  5. VIMOVO [Concomitant]
     Active Substance: ESOMEPRAZOLE MAGNESIUM\NAPROXEN
     Dosage: UNK UNK, 2X/DAY
  6. ULTRACET [Concomitant]
     Active Substance: ACETAMINOPHEN\TRAMADOL HYDROCHLORIDE
     Dosage: UNK UNK, 1X/DAY
     Route: 065

REACTIONS (8)
  - Fatigue [Recovered/Resolved]
  - Lymphadenopathy [Recovered/Resolved]
  - Headache [Recovered/Resolved]
  - Haemorrhage [Recovered/Resolved]
  - Sinusitis [Recovered/Resolved]
  - Abdominal pain [Recovered/Resolved]
  - Red blood cell count decreased [Recovered/Resolved]
  - Arthralgia [Recovered/Resolved]
